FAERS Safety Report 10443309 (Version 15)
Quarter: 2015Q3

REPORT INFORMATION
  Report Type: Spontaneous
  Country: CA (occurrence: CA)
  Receive Date: 20140910
  Receipt Date: 20150904
  Transmission Date: 20151125
  Serious: Yes (Other)
  Sender: FDA-Public Use
  Company Number: CA-ROCHE-1459352

PATIENT
  Age: 77 Year
  Sex: Male
  Weight: 103 kg

DRUGS (24)
  1. XOLAIR [Suspect]
     Active Substance: OMALIZUMAB
     Route: 058
     Dates: start: 20140328
  2. XOLAIR [Suspect]
     Active Substance: OMALIZUMAB
     Route: 058
     Dates: start: 20150730
  3. CRESTOR [Concomitant]
     Active Substance: ROSUVASTATIN CALCIUM
     Route: 065
     Dates: start: 20130711
  4. XOLAIR [Suspect]
     Active Substance: OMALIZUMAB
     Route: 058
     Dates: start: 20141120
  5. XOLAIR [Suspect]
     Active Substance: OMALIZUMAB
     Route: 058
     Dates: start: 20150406
  6. XOLAIR [Suspect]
     Active Substance: OMALIZUMAB
     Route: 058
     Dates: start: 20150827
  7. XOLAIR [Suspect]
     Active Substance: OMALIZUMAB
     Route: 058
     Dates: start: 20130815
  8. MICARDIS [Concomitant]
     Active Substance: TELMISARTAN
  9. XOLAIR [Suspect]
     Active Substance: OMALIZUMAB
     Route: 058
     Dates: start: 20130829
  10. XOLAIR [Suspect]
     Active Substance: OMALIZUMAB
     Route: 058
     Dates: start: 20140213
  11. HYDROCHLOROTHIAZIDE. [Concomitant]
     Active Substance: HYDROCHLOROTHIAZIDE
  12. THEOPHYLLINE [Concomitant]
     Active Substance: THEOPHYLLINE ANHYDROUS
  13. XOLAIR [Suspect]
     Active Substance: OMALIZUMAB
     Indication: ASTHMA
     Route: 058
     Dates: start: 20110606
  14. XOLAIR [Suspect]
     Active Substance: OMALIZUMAB
     Route: 058
     Dates: start: 20150115
  15. SINGULAIR [Concomitant]
     Active Substance: MONTELUKAST SODIUM
  16. XOLAIR [Suspect]
     Active Substance: OMALIZUMAB
     Route: 058
     Dates: start: 20120910
  17. XOLAIR [Suspect]
     Active Substance: OMALIZUMAB
     Route: 058
     Dates: start: 20150212
  18. XOLAIR [Suspect]
     Active Substance: OMALIZUMAB
     Route: 058
     Dates: start: 20130912
  19. XOLAIR [Suspect]
     Active Substance: OMALIZUMAB
     Route: 058
     Dates: start: 20131023
  20. XOLAIR [Suspect]
     Active Substance: OMALIZUMAB
     Route: 058
     Dates: start: 20140410
  21. XOLAIR [Suspect]
     Active Substance: OMALIZUMAB
     Route: 058
     Dates: start: 20140606
  22. XOLAIR [Suspect]
     Active Substance: OMALIZUMAB
     Route: 058
     Dates: start: 20140717
  23. XOLAIR [Suspect]
     Active Substance: OMALIZUMAB
     Route: 058
     Dates: start: 20141106
  24. XOLAIR [Suspect]
     Active Substance: OMALIZUMAB
     Route: 058
     Dates: start: 20150618

REACTIONS (35)
  - Blood pressure increased [Not Recovered/Not Resolved]
  - Pain [Unknown]
  - Blood pressure fluctuation [Unknown]
  - Weight decreased [Unknown]
  - Sepsis [Unknown]
  - Gastroenteritis viral [Unknown]
  - Respiratory tract congestion [Recovering/Resolving]
  - Pyrexia [Unknown]
  - Dyspnoea exertional [Unknown]
  - Lung infection [Recovering/Resolving]
  - Nasopharyngitis [Unknown]
  - Tendon pain [Unknown]
  - Productive cough [Recovered/Resolved]
  - Chills [Unknown]
  - Hypotension [Unknown]
  - Dyspnoea [Not Recovered/Not Resolved]
  - Low density lipoprotein increased [Unknown]
  - Blood pressure abnormal [Unknown]
  - Rales [Unknown]
  - Lower respiratory tract infection [Recovering/Resolving]
  - Nasal congestion [Recovered/Resolved]
  - Skin abrasion [Unknown]
  - Eschar [Recovering/Resolving]
  - Skin lesion [Recovering/Resolving]
  - Asthma [Unknown]
  - Respiratory tract infection [Recovering/Resolving]
  - Malaise [Recovered/Resolved]
  - Asthenia [Unknown]
  - Urinary tract infection [Unknown]
  - Seasonal allergy [Recovered/Resolved]
  - Fall [Unknown]
  - Influenza [Unknown]
  - Heart rate decreased [Not Recovered/Not Resolved]
  - Fatigue [Not Recovered/Not Resolved]
  - Cough [Recovered/Resolved]

NARRATIVE: CASE EVENT DATE: 20111101
